FAERS Safety Report 16120221 (Version 3)
Quarter: 2020Q2

REPORT INFORMATION
  Report Type: Report from Study
  Country: DE (occurrence: DE)
  Receive Date: 20190326
  Receipt Date: 20200423
  Transmission Date: 20200713
  Serious: Yes (Hospitalization)
  Sender: FDA-Public Use
  Company Number: DE-SHIRE-DE201900375

PATIENT

DRUGS (10)
  1. PARATHYROID HORMONE [Suspect]
     Active Substance: PARATHYROID HORMONE
     Indication: HYPOPARATHYROIDISM
     Dosage: 100 MICROGRAM, 1X/DAY:QD
     Route: 058
     Dates: start: 20171206
  2. ALPHACALCIDOL [Concomitant]
     Active Substance: ALFACALCIDOL
     Indication: HYPOPARATHYROIDISM
  3. CALCIUM [Concomitant]
     Active Substance: CALCIUM
     Indication: HYPOPARATHYROIDISM
  4. PANTOPRAZOL [Concomitant]
     Active Substance: PANTOPRAZOLE SODIUM
     Indication: GASTRIC DISORDER
  5. CALCIUM VERLA [Concomitant]
     Indication: HYPOPARATHYROIDISM
  6. L-THYROXIN [Concomitant]
     Active Substance: LEVOTHYROXINE SODIUM
     Indication: THYROID OPERATION
  7. NOVAMINSULFON [Concomitant]
     Active Substance: METAMIZOLE
     Indication: ANALGESIC THERAPY
  8. PARATHYROID HORMONE [Suspect]
     Active Substance: PARATHYROID HORMONE
     Dosage: 100 MICROGRAM, 1X/DAY:QD
     Route: 058
     Dates: start: 20171206
  9. MAGNESIUM [Concomitant]
     Active Substance: MAGNESIUM
     Indication: HYPOPARATHYROIDISM
  10. GLAUPAX [Concomitant]
     Active Substance: ACETAZOLAMIDE
     Indication: INTRAOCULAR PRESSURE INCREASED

REACTIONS (11)
  - Muscular weakness [Recovered/Resolved]
  - Muscle spasms [Recovered/Resolved]
  - Fatigue [Recovered/Resolved]
  - Abdominal pain upper [Not Recovered/Not Resolved]
  - Blood calcium decreased [Not Recovered/Not Resolved]
  - Discomfort [Recovered/Resolved]
  - Hypophagia [Not Recovered/Not Resolved]
  - Weight decreased [Recovered/Resolved]
  - Nausea [Not Recovered/Not Resolved]
  - Bone pain [Recovering/Resolving]
  - Decreased appetite [Not Recovered/Not Resolved]

NARRATIVE: CASE EVENT DATE: 20181210
